FAERS Safety Report 8901483 (Version 1)
Quarter: 2012Q4

REPORT INFORMATION
  Report Type: 
  Country: US (occurrence: US)
  Receive Date: 20121109
  Receipt Date: 20121109
  Transmission Date: 20130627
  Serious: Yes (Hospitalization)
  Sender: FDA-Public Use
  Company Number: US-B.I. PHARMACEUTICALS,INC./RIDGEFIELD-2012-BP-27373BP

PATIENT
  Age: 88 Year
  Sex: Female

DRUGS (13)
  1. PRADAXA [Suspect]
     Indication: ATRIAL FIBRILLATION
     Dosage: 150 mg
     Route: 048
     Dates: start: 20121026, end: 20121031
  2. MICARDIS [Suspect]
     Indication: HYPERTENSION
     Dosage: 40 mg
     Route: 048
     Dates: end: 20121031
  3. VIT B12 [Concomitant]
     Indication: ANAEMIA
     Dosage: 1000 mcg
     Route: 048
     Dates: end: 20121031
  4. FLUTICASONE [Concomitant]
     Indication: RHINITIS
     Route: 045
     Dates: end: 20121031
  5. CO ENZYME Q10 [Concomitant]
     Indication: CARDIOVASCULAR EVENT PROPHYLAXIS
     Dosage: 100 mg
     Route: 048
     Dates: end: 20121031
  6. FISH OIL [Concomitant]
     Indication: BLOOD TRIGLYCERIDES INCREASED
     Dosage: 1000 mg
     Route: 048
     Dates: end: 20121031
  7. ASPIRIN [Concomitant]
     Indication: ANTICOAGULANT THERAPY
     Dosage: 81 mg
     Route: 048
     Dates: end: 20121031
  8. LEVAQUIN [Concomitant]
     Indication: UPPER RESPIRATORY TRACT INFECTION
     Route: 048
     Dates: end: 20121031
  9. DIGOXIN [Concomitant]
     Indication: ATRIAL FIBRILLATION
     Dosage: 125 mcg
     Dates: end: 20121031
  10. BYSTOLIC [Concomitant]
     Indication: HYPERTENSION
     Dosage: 10 mg
     Route: 048
     Dates: end: 20121031
  11. FUROSEMIDE [Concomitant]
     Indication: HYPERTENSION
     Dosage: 20 mg
     Route: 048
     Dates: end: 20121031
  12. MUCINEX [Concomitant]
     Indication: PULMONARY CONGESTION
     Dosage: 1200 mg
     Route: 048
     Dates: end: 20121031
  13. LEVOTHYROXINE [Concomitant]
     Indication: HYPOTHYROIDISM
     Dosage: 112 mcg
     Route: 048

REACTIONS (1)
  - Lower gastrointestinal haemorrhage [Recovered/Resolved]
